FAERS Safety Report 21206097 (Version 1)
Quarter: 2022Q3

REPORT INFORMATION
  Report Type: Spontaneous
  Country: US (occurrence: US)
  Receive Date: 20220812
  Receipt Date: 20220812
  Transmission Date: 20221026
  Serious: No
  Sender: FDA-Public Use
  Company Number: US-NOVARTISTESTPH-NVSC2022US182274

PATIENT
  Age: 53 Year
  Sex: Female

DRUGS (1)
  1. COMBIPATCH [Suspect]
     Active Substance: ESTRADIOL\NORETHINDRONE ACETATE
     Indication: Product used for unknown indication
     Dosage: UNK, A COUPLE OF MONTHS AGO
     Route: 062
     Dates: start: 2022

REACTIONS (2)
  - Intermenstrual bleeding [Unknown]
  - Application site irritation [Unknown]

NARRATIVE: CASE EVENT DATE: 20220101
